FAERS Safety Report 15128128 (Version 2)
Quarter: 2018Q4

REPORT INFORMATION
  Report Type: Spontaneous
  Country: US (occurrence: US)
  Receive Date: 20180710
  Receipt Date: 20181116
  Transmission Date: 20190204
  Serious: Yes (Hospitalization, Other)
  Sender: FDA-Public Use
  Company Number: US-BRISTOL-MYERS SQUIBB COMPANY-BMS-2018-061648

PATIENT
  Sex: Female

DRUGS (1)
  1. ORENCIA [Suspect]
     Active Substance: ABATACEPT
     Indication: RHEUMATOID ARTHRITIS
     Dosage: 125 MG, UNK
     Route: 058
     Dates: start: 201806

REACTIONS (7)
  - Cardiac disorder [Unknown]
  - Loss of consciousness [Unknown]
  - Nausea [Unknown]
  - Migraine [Unknown]
  - Drug ineffective [Unknown]
  - Complication associated with device [Unknown]
  - Arthralgia [Unknown]
